FAERS Safety Report 8269237-8 (Version None)
Quarter: 2012Q2

REPORT INFORMATION
  Report Type: 
  Country: None (occurrence: None)
  Receive Date: 20120409
  Receipt Date: 20120402
  Transmission Date: 20120825
  Serious: Yes (Death, Hospitalization)
  Sender: FDA-Public Use
  Company Number: JP-ROCHE-1012988

PATIENT
  Sex: Female
  Weight: 44.2 kg

DRUGS (15)
  1. LANSOPRAZOLE [Concomitant]
     Indication: PROPHYLAXIS AGAINST GASTROINTESTINAL ULCER
     Dosage: SINGLE USE
     Route: 048
     Dates: start: 20110517
  2. CLARITHROMYCIN [Concomitant]
     Indication: BRONCHITIS
     Route: 048
     Dates: start: 20111004
  3. SUMILU [Concomitant]
     Indication: RHEUMATOID ARTHRITIS
     Route: 061
     Dates: start: 20110708
  4. TOCLASE [Concomitant]
     Indication: BRONCHITIS
     Route: 048
     Dates: start: 20111107
  5. ACTEMRA [Suspect]
     Indication: RHEUMATOID ARTHRITIS
     Dosage: [YASUKUSURI]
     Route: 058
     Dates: start: 20110221, end: 20110916
  6. RISEDRONATE SODIUM [Concomitant]
     Indication: OSTEOPOROSIS
     Route: 048
     Dates: start: 20090630
  7. KETOPROFEN [Concomitant]
     Indication: RHEUMATOID ARTHRITIS
     Route: 061
  8. LIPITOR [Concomitant]
     Indication: HYPERCHOLESTEROLAEMIA
     Route: 048
     Dates: start: 20111004
  9. MAGMITT [Concomitant]
     Indication: CONSTIPATION
     Route: 048
     Dates: start: 20101018
  10. BLINDED TOCILIZUMAB [Suspect]
     Indication: RHEUMATOID ARTHRITIS
     Route: 042
     Dates: start: 20100906
  11. SAWATENE [Concomitant]
     Indication: BRONCHITIS
     Route: 048
     Dates: start: 20111107
  12. MUCOSIL-10 [Concomitant]
     Indication: BRONCHITIS
     Route: 048
     Dates: start: 20111012
  13. CELEBREX [Concomitant]
     Indication: RHEUMATOID ARTHRITIS
     Dosage: SINGLE USE
     Route: 048
     Dates: start: 20101227
  14. ZETIA [Concomitant]
     Indication: HYPERLIPIDAEMIA
     Route: 048
     Dates: start: 20111107
  15. INFREE [Concomitant]
     Indication: RHEUMATOID ARTHRITIS
     Route: 048
     Dates: start: 20111107

REACTIONS (2)
  - DISSEMINATED INTRAVASCULAR COAGULATION [None]
  - GASTRIC CANCER [None]
